FAERS Safety Report 17152756 (Version 1)
Quarter: 2019Q4

REPORT INFORMATION
  Report Type: Spontaneous
  Country: US (occurrence: US)
  Receive Date: 20191213
  Receipt Date: 20191213
  Transmission Date: 20200122
  Serious: Yes (Other)
  Sender: FDA-Public Use
  Company Number: US-NOVOPROD-682223

PATIENT
  Age: 65 Year
  Sex: Male

DRUGS (4)
  1. LEVEMIR [Suspect]
     Active Substance: INSULIN DETEMIR
     Dosage: DOSE INCREASED
     Route: 058
  2. METFORMIN [Concomitant]
     Active Substance: METFORMIN HYDROCHLORIDE
     Indication: PRODUCT USED FOR UNKNOWN INDICATION
     Dosage: UNK
     Route: 065
  3. HUMALOG [Concomitant]
     Active Substance: INSULIN LISPRO
     Indication: PRODUCT USED FOR UNKNOWN INDICATION
     Dosage: SLIDING SCALE
     Route: 065
  4. LEVEMIR [Suspect]
     Active Substance: INSULIN DETEMIR
     Indication: TYPE 2 DIABETES MELLITUS
     Dosage: 26 UNITS
     Route: 058
     Dates: start: 2011

REACTIONS (7)
  - Stress [Unknown]
  - Glycosylated haemoglobin increased [Not Recovered/Not Resolved]
  - Blood glucose decreased [Not Recovered/Not Resolved]
  - Fatigue [Not Recovered/Not Resolved]
  - Diabetes mellitus inadequate control [Unknown]
  - Drug ineffective [Unknown]
  - Blood glucose increased [Not Recovered/Not Resolved]

NARRATIVE: CASE EVENT DATE: 2014
